FAERS Safety Report 5515503-6 (Version None)
Quarter: 2007Q4

REPORT INFORMATION
  Report Type: 
  Country: None (occurrence: None)
  Receive Date: 20071113
  Receipt Date: 20070307
  Transmission Date: 20080405
  Serious: No
  Sender: FDA-Public Use
  Company Number: A0642194A

PATIENT
  Age: 81 Year
  Sex: Female

DRUGS (14)
  1. COREG [Suspect]
     Indication: ATRIAL FIBRILLATION
     Dosage: 12.5MG TWICE PER DAY
     Route: 048
  2. ENALAPRIL MALEATE [Concomitant]
  3. COUMADIN [Concomitant]
  4. FOLIC ACID [Concomitant]
  5. DIGOXIN [Concomitant]
  6. SYNTHROID [Concomitant]
  7. AMIODARONE [Concomitant]
  8. BELLADONNA [Concomitant]
  9. FUROSEMIDE [Concomitant]
  10. LEXAPRO [Concomitant]
  11. TRIMETHOPRIM [Concomitant]
  12. PREVACID [Concomitant]
  13. DONNATAL [Concomitant]
  14. UNKNOWN MEDICATION [Concomitant]

REACTIONS (1)
  - ALOPECIA [None]
